FAERS Safety Report 17177006 (Version 1)
Quarter: 2019Q4

REPORT INFORMATION
  Report Type: Spontaneous
  Country: US (occurrence: US)
  Receive Date: 20191219
  Receipt Date: 20191219
  Transmission Date: 20200122
  Serious: No
  Sender: FDA-Public Use
  Company Number: US-ASTRAZENECA-2019SF82190

PATIENT
  Sex: Male
  Weight: 3.9 kg

DRUGS (1)
  1. SYNAGIS [Suspect]
     Active Substance: PALIVIZUMAB
     Indication: RESPIRATORY SYNCYTIAL VIRUS INFECTION
     Dosage: 50MG/0.5ML VIAL, 15 MG/ML MONTHLY
     Route: 030
     Dates: start: 201911

REACTIONS (1)
  - Gastrooesophageal reflux disease [Unknown]
